FAERS Safety Report 18883896 (Version 1)
Quarter: 2021Q1

REPORT INFORMATION
  Report Type: Spontaneous
  Country: LT (occurrence: LT)
  Receive Date: 20210211
  Receipt Date: 20210211
  Transmission Date: 20210420
  Serious: Yes (Life-Threatening, Hospitalization, Other)
  Sender: FDA-Public Use
  Company Number: LT-JNJFOC-20210200905

PATIENT
  Age: 1 Year
  Sex: Male

DRUGS (7)
  1. METHYLPREDNISOLONE. [Suspect]
     Active Substance: METHYLPREDNISOLONE
     Route: 042
  2. VALPROIC ACID. [Suspect]
     Active Substance: VALPROIC ACID
     Indication: IDIOPATHIC GENERALISED EPILEPSY
     Dosage: GRADUAL INCREASE OF THE DOSES
     Route: 065
  3. METHYLPREDNISOLONE. [Suspect]
     Active Substance: METHYLPREDNISOLONE
     Indication: IDIOPATHIC GENERALISED EPILEPSY
     Dosage: FOR 3 DAYS EVERY MONTH FOR 3 MONTHS
     Route: 042
  4. METHYLPREDNISOLONE. [Suspect]
     Active Substance: METHYLPREDNISOLONE
     Dosage: SINGLE
     Route: 042
  5. LAMOTRIGINE. [Suspect]
     Active Substance: LAMOTRIGINE
     Indication: IDIOPATHIC GENERALISED EPILEPSY
     Route: 065
  6. TOPIRAMATE. [Suspect]
     Active Substance: TOPIRAMATE
     Indication: IDIOPATHIC GENERALISED EPILEPSY
     Dosage: GRADUAL INCREASE OF THE DOSES
     Route: 065
  7. NITRAZEPAM [Suspect]
     Active Substance: NITRAZEPAM
     Indication: IDIOPATHIC GENERALISED EPILEPSY
     Dosage: WAS ADDED TO THE TREATMENT SCHEME FOR THE NIGHT
     Route: 065

REACTIONS (7)
  - Product use issue [Unknown]
  - Off label use [Unknown]
  - Fatigue [Unknown]
  - Rash [Unknown]
  - Dehydration [Unknown]
  - Partial seizures [Unknown]
  - Decreased appetite [Unknown]
